FAERS Safety Report 4845429-2 (Version None)
Quarter: 2005Q4

REPORT INFORMATION
  Report Type: 
  Country: None (occurrence: None)
  Receive Date: 20051125
  Receipt Date: 20051111
  Transmission Date: 20060501
  Serious: Yes (Hospitalization)
  Sender: FDA-Public Use
  Company Number: HQWYE626918NOV05

PATIENT
  Age: 38 Year
  Sex: Male

DRUGS (9)
  1. RAPAMUNE [Suspect]
     Indication: PROPHYLAXIS AGAINST TRANSPLANT REJECTION
     Dosage: SEE IMAGE
     Route: 048
     Dates: start: 20050523, end: 20050101
  2. RAPAMUNE [Suspect]
     Indication: PROPHYLAXIS AGAINST TRANSPLANT REJECTION
     Dosage: SEE IMAGE
     Route: 048
     Dates: start: 20050816, end: 20051024
  3. RAPAMUNE [Suspect]
     Indication: PROPHYLAXIS AGAINST TRANSPLANT REJECTION
     Dosage: SEE IMAGE
     Route: 048
     Dates: start: 20051025
  4. CYCLOSPORINE [Suspect]
     Dosage: SEE IMAGE
     Route: 048
     Dates: start: 20050816, end: 20051006
  5. CYCLOSPORINE [Suspect]
     Dosage: SEE IMAGE
     Route: 048
     Dates: start: 20051007, end: 20051007
  6. CYCLOSPORINE [Suspect]
     Dosage: SEE IMAGE
     Route: 048
     Dates: start: 20051008
  7. PREDSONE (PREDNISONE) [Concomitant]
  8. SULFAMETHOXAZOLE W/TRIMETHOPRIM (SULFAMETHOXAZOLE W/TRIMETHOPRIM) [Concomitant]
  9. SIMVASTATIN [Concomitant]

REACTIONS (5)
  - COMPLICATIONS OF TRANSPLANTED KIDNEY [None]
  - HAEMATURIA [None]
  - KIDNEY TRANSPLANT REJECTION [None]
  - PERIRENAL HAEMATOMA [None]
  - PYREXIA [None]
